FAERS Safety Report 22039088 (Version 2)
Quarter: 2023Q1

REPORT INFORMATION
  Report Type: Spontaneous
  Country: US (occurrence: US)
  Receive Date: 20230227
  Receipt Date: 20230327
  Transmission Date: 20230417
  Serious: No
  Sender: FDA-Public Use
  Company Number: US-FDC-2023USSPO00065

PATIENT
  Age: 90 Year
  Sex: Female
  Weight: 130 kg

DRUGS (1)
  1. DORZOLAMIDE HYDROCHLORIDE\TIMOLOL MALEATE [Suspect]
     Active Substance: DORZOLAMIDE HYDROCHLORIDE\TIMOLOL MALEATE
     Indication: Glaucoma
     Dosage: 1 DROP
     Route: 047
     Dates: start: 202301, end: 20230201

REACTIONS (5)
  - Eye irritation [Recovered/Resolved]
  - Headache [Recovered/Resolved]
  - Periorbital swelling [Recovered/Resolved]
  - Dysgeusia [Recovered/Resolved]
  - Product taste abnormal [Recovered/Resolved]

NARRATIVE: CASE EVENT DATE: 20230101
